FAERS Safety Report 4943752-4 (Version None)
Quarter: 2006Q1

REPORT INFORMATION
  Report Type: 
  Country: None (occurrence: None)
  Receive Date: 20060314
  Receipt Date: 20050909
  Transmission Date: 20060701
  Serious: Yes (Death, Hospitalization)
  Sender: FDA-Public Use
  Company Number: FR-MERCK-0509FRA00034

PATIENT
  Age: 80 Year
  Sex: Male
  Weight: 73 kg

DRUGS (8)
  1. ZOCOR [Suspect]
     Route: 048
     Dates: start: 20020401, end: 20050801
  2. SIMVASTATIN [Concomitant]
     Route: 048
     Dates: end: 20020101
  3. FLECAINIDE ACETATE [Suspect]
     Indication: ATRIAL FIBRILLATION
     Route: 048
     Dates: start: 20020601, end: 20050822
  4. FLECAINIDE ACETATE [Suspect]
     Route: 048
     Dates: start: 20050901
  5. PERINDOPRIL ERBUMINE [Suspect]
     Route: 048
     Dates: end: 20040501
  6. PERINDOPRIL ERBUMINE [Suspect]
     Route: 048
     Dates: start: 20040501, end: 20050817
  7. CLOPIDOGREL BISULFATE [Suspect]
     Route: 048
     Dates: start: 20020601, end: 20050801
  8. ATENOLOL [Suspect]
     Route: 048
     Dates: start: 20011201, end: 20050812

REACTIONS (7)
  - ACUTE RESPIRATORY FAILURE [None]
  - ATRIAL FIBRILLATION [None]
  - CARDIAC FAILURE CONGESTIVE [None]
  - INTERSTITIAL LUNG DISEASE [None]
  - LUNG INFECTION [None]
  - PULMONARY FIBROSIS [None]
  - PULMONARY HYPERTENSION [None]
